FAERS Safety Report 20859530 (Version 1)
Quarter: 2022Q2

REPORT INFORMATION
  Report Type: Spontaneous
  Country: US (occurrence: US)
  Receive Date: 20220523
  Receipt Date: 20220523
  Transmission Date: 20220721
  Serious: No
  Sender: FDA-Public Use
  Company Number: US-JNJFOC-20220538258

PATIENT

DRUGS (2)
  1. MENS ROGAINE EXTRA STRENGTH [Suspect]
     Active Substance: MINOXIDIL
     Indication: Alopecia
     Dosage: 3 QUARTERS OF A CAP TWICE A DAY
     Route: 061
     Dates: start: 202201
  2. MENS ROGAINE EXTRA STRENGTH [Suspect]
     Active Substance: MINOXIDIL
     Dosage: 3/4 OF A CUP
     Route: 061
     Dates: start: 202205

REACTIONS (4)
  - Application site erythema [Not Recovered/Not Resolved]
  - Application site pain [Unknown]
  - Application site exfoliation [Not Recovered/Not Resolved]
  - Overdose [Unknown]

NARRATIVE: CASE EVENT DATE: 20220101
